FAERS Safety Report 12327454 (Version 1)
Quarter: 2016Q2

REPORT INFORMATION
  Report Type: Spontaneous
  Country: JP (occurrence: JP)
  Receive Date: 20160503
  Receipt Date: 20160503
  Transmission Date: 20160815
  Serious: Yes (Other)
  Sender: FDA-Public Use
  Company Number: JP-ROCHE-1739537

PATIENT
  Age: 40 Year
  Sex: Male

DRUGS (3)
  1. LOXONIN [Suspect]
     Active Substance: LOXOPROFEN SODIUM
     Indication: PROPHYLAXIS
     Dosage: UNCERTAIN DOSAGE AND TAKEN AS NEEDED
     Route: 048
     Dates: start: 20160308, end: 20160312
  2. TAMIFLU [Suspect]
     Active Substance: OSELTAMIVIR PHOSPHATE
     Indication: INFLUENZA
     Route: 048
     Dates: start: 20160308, end: 20160308
  3. ASTOMIN (JAPAN) [Concomitant]
     Indication: PROPHYLAXIS
     Dosage: 6 TABLETS AS NEEDED
     Route: 048
     Dates: start: 20160308, end: 20160312

REACTIONS (3)
  - Loss of consciousness [Recovered/Resolved]
  - Agitation [Recovered/Resolved]
  - Abdominal pain [Unknown]

NARRATIVE: CASE EVENT DATE: 20160308
